FAERS Safety Report 6265122-1 (Version None)
Quarter: 2009Q3

REPORT INFORMATION
  Report Type: 
  Country: None (occurrence: None)
  Receive Date: 20090713
  Receipt Date: 20090701
  Transmission Date: 20100115
  Serious: Yes (Death, Hospitalization)
  Sender: FDA-Public Use
  Company Number: PL-JNJFOC-20090400780

PATIENT
  Sex: Female
  Weight: 70 kg

DRUGS (9)
  1. REMICADE [Suspect]
     Route: 042
  2. REMICADE [Suspect]
     Indication: DRUG USE FOR UNKNOWN INDICATION
     Route: 042
  3. METHOTREXATE [Concomitant]
     Route: 048
  4. METYPRED [Concomitant]
     Route: 048
  5. CALCIUM [Concomitant]
     Route: 048
  6. METOPROLOL TARTRATE [Concomitant]
     Route: 048
  7. ATORVASTATIN CALCIUM [Concomitant]
     Route: 048
  8. PANTOPRAZOL [Concomitant]
     Route: 047
  9. EUTHYROX [Concomitant]
     Indication: AUTOIMMUNE THYROIDITIS
     Dosage: DOSE: 150M
     Route: 048

REACTIONS (5)
  - BRONCHOPNEUMONIA [None]
  - HYPOTENSION [None]
  - PYREXIA [None]
  - RESPIRATORY FAILURE [None]
  - VENTRICULAR TACHYCARDIA [None]
